FAERS Safety Report 14798600 (Version 1)
Quarter: 2018Q2

REPORT INFORMATION
  Report Type: Spontaneous
  Country: US (occurrence: US)
  Receive Date: 20180424
  Receipt Date: 20180424
  Transmission Date: 20180711
  Serious: No
  Sender: FDA-Public Use
  Company Number: US-009507513-1804USA000548

PATIENT
  Age: 4 Year
  Weight: 20.9 kg

DRUGS (1)
  1. ISENTRESS [Suspect]
     Active Substance: RALTEGRAVIR POTASSIUM
     Indication: PROPHYLAXIS
     Dosage: 1/2 OF A 400MG TABLET
     Route: 065

REACTIONS (3)
  - Overdose [Unknown]
  - Drug prescribing error [Unknown]
  - No adverse event [Unknown]
